FAERS Safety Report 5070447-1 (Version None)
Quarter: 2006Q3

REPORT INFORMATION
  Report Type: 
  Country: None (occurrence: None)
  Receive Date: 20060804
  Receipt Date: 20060725
  Transmission Date: 20061208
  Serious: Yes (Hospitalization)
  Sender: FDA-Public Use
  Company Number: DE-ABBOTT-06P-062-0338868-00

PATIENT
  Sex: Female
  Weight: 85 kg

DRUGS (9)
  1. SEVORANE LIQUID FOR INHALATION [Suspect]
     Indication: GENERAL ANAESTHESIA
     Route: 055
     Dates: start: 20060619, end: 20060619
  2. ISOFLURANE [Concomitant]
     Indication: ANAESTHESIA
     Route: 055
     Dates: start: 20060619, end: 20060619
  3. ROCURONIUM BROMIDE [Concomitant]
     Indication: DRUG USE FOR UNKNOWN INDICATION
  4. ETOMIDATE [Concomitant]
     Indication: DRUG USE FOR UNKNOWN INDICATION
  5. FENTANYL [Concomitant]
     Indication: DRUG USE FOR UNKNOWN INDICATION
     Route: 042
     Dates: start: 20060619, end: 20060619
  6. CEFTRIAXONE SODIUM [Concomitant]
     Indication: DRUG USE FOR UNKNOWN INDICATION
  7. CLORAZEPATE DIPOTASSIUM [Concomitant]
     Indication: DRUG USE FOR UNKNOWN INDICATION
     Route: 048
     Dates: start: 20060618, end: 20060618
  8. DORMICUM [Concomitant]
     Indication: DRUG USE FOR UNKNOWN INDICATION
     Route: 048
     Dates: start: 20060619, end: 20060619
  9. PIRITRAMIDE [Concomitant]
     Indication: DRUG USE FOR UNKNOWN INDICATION
     Route: 042
     Dates: start: 20060619, end: 20060619

REACTIONS (7)
  - BLOOD BILIRUBIN INCREASED [None]
  - BLOOD LACTIC ACID INCREASED [None]
  - DEPRESSED LEVEL OF CONSCIOUSNESS [None]
  - DRUG EFFECT PROLONGED [None]
  - HEPATIC ENZYME INCREASED [None]
  - LIVER DISORDER [None]
  - METABOLIC ACIDOSIS [None]
